FAERS Safety Report 4506884-0 (Version None)
Quarter: 2004Q4

REPORT INFORMATION
  Report Type: 
  Country: None (occurrence: None)
  Receive Date: 20041117
  Receipt Date: 20041108
  Transmission Date: 20050328
  Serious: Yes (Other)
  Sender: FDA-Public Use
  Company Number: 2004090807

PATIENT
  Age: 50 Year
  Sex: Female

DRUGS (2)
  1. ALPRAZOLAM [Suspect]
     Indication: ANXIETY
     Dosage: ORAL
     Route: 048
  2. ANASTROZOLE (ANASTROZOLE) [Concomitant]

REACTIONS (4)
  - BREAST CANCER FEMALE [None]
  - DRUG INEFFECTIVE [None]
  - MEDICATION ERROR [None]
  - SOMNOLENCE [None]
